FAERS Safety Report 4296487-8 (Version None)
Quarter: 2004Q1

REPORT INFORMATION
  Report Type: 
  Country: None (occurrence: None)
  Receive Date: 20040129
  Receipt Date: 20031015
  Transmission Date: 20041129
  Serious: No
  Sender: FDA-Public Use
  Company Number: AE03-30

PATIENT
  Sex: Female

DRUGS (5)
  1. IMMUNE GLOBULIN (HUMAN) [Suspect]
     Indication: HYPOGAMMAGLOBULINAEMIA
     Dosage: 2 CC IM
     Route: 030
     Dates: start: 20030906, end: 20031004
  2. COUMADIN [Concomitant]
  3. STEROIDS [Concomitant]
  4. EPO [Concomitant]
  5. ALEVE [Concomitant]

REACTIONS (6)
  - BEDRIDDEN [None]
  - FATIGUE [None]
  - MUSCULAR WEAKNESS [None]
  - PAIN [None]
  - PRURITUS [None]
  - PYREXIA [None]
